FAERS Safety Report 4896255-X (Version None)
Quarter: 2006Q1

REPORT INFORMATION
  Report Type: 
  Country: None (occurrence: None)
  Receive Date: 20060126
  Receipt Date: 20060112
  Transmission Date: 20060701
  Serious: Yes (Hospitalization)
  Sender: FDA-Public Use
  Company Number: US015795

PATIENT
  Age: 51 Year
  Sex: Female
  Weight: 47.6277 kg

DRUGS (2)
  1. ACTIQ [Suspect]
     Indication: BACK PAIN
     Dosage: 4000 UG BUCCAL
     Route: 002
     Dates: start: 20050401
  2. DURAGESIC-100 [Concomitant]

REACTIONS (10)
  - BLOOD POTASSIUM DECREASED [None]
  - COGNITIVE DISORDER [None]
  - DEHYDRATION [None]
  - DISEASE PROGRESSION [None]
  - DISORIENTATION [None]
  - DRUG DEPENDENCE [None]
  - EYE ROLLING [None]
  - HYPERSOMNIA [None]
  - HYPOTONIA [None]
  - TREATMENT NONCOMPLIANCE [None]
